FAERS Safety Report 24178494 (Version 1)
Quarter: 2024Q3

REPORT INFORMATION
  Report Type: Report from Study
  Country: US (occurrence: None)
  Receive Date: 20240806
  Receipt Date: 20240806
  Transmission Date: 20241017
  Serious: Yes (Other)
  Sender: ASTRAZENECA
  Company Number: 2022A090057

PATIENT
  Sex: Male

DRUGS (1)
  1. CALQUENCE [Suspect]
     Active Substance: ACALABRUTINIB
     Indication: Chronic lymphocytic leukaemia
     Route: 048
     Dates: start: 20211214

REACTIONS (18)
  - Blood glucose increased [Unknown]
  - Feeling abnormal [Unknown]
  - Cold sweat [Unknown]
  - Insomnia [Unknown]
  - Peripheral swelling [Unknown]
  - Pain [Unknown]
  - Decreased appetite [Unknown]
  - Osteoporosis [Unknown]
  - Sluggishness [Unknown]
  - Depression [Unknown]
  - Gait disturbance [Unknown]
  - Fatigue [Unknown]
  - Memory impairment [Unknown]
  - Balance disorder [Unknown]
  - Weight fluctuation [Unknown]
  - Product dose omission in error [Unknown]
  - Drug ineffective [Unknown]
  - Presyncope [Unknown]
